FAERS Safety Report 9649349 (Version 1)
Quarter: 2013Q4

REPORT INFORMATION
  Report Type: Spontaneous
  Country: IT (occurrence: IT)
  Receive Date: 20131028
  Receipt Date: 20131028
  Transmission Date: 20140711
  Serious: Yes (Other)
  Sender: FDA-Public Use
  Company Number: IT-ASTRAZENECA-2013SE77074

PATIENT
  Age: 55 Year
  Sex: Male

DRUGS (2)
  1. LIDOCAINE [Suspect]
     Indication: LOCAL ANAESTHESIA
     Dosage: THREE GARGLES WITH ABOUT 56 ML IN TOTAL, TOTAL 200 MG
  2. MIDAZOLAM [Concomitant]
     Indication: PREMEDICATION
     Route: 030

REACTIONS (4)
  - Psychomotor hyperactivity [Recovered/Resolved]
  - Grand mal convulsion [Recovered/Resolved]
  - Loss of consciousness [Recovered/Resolved]
  - Coma [Recovered/Resolved]
